FAERS Safety Report 13272087 (Version 1)
Quarter: 2017Q1

REPORT INFORMATION
  Report Type: Spontaneous
  Country: US (occurrence: US)
  Receive Date: 20170224
  Receipt Date: 20170224
  Transmission Date: 20170428
  Serious: Yes (Death)
  Sender: FDA-Public Use
  Company Number: None

PATIENT
  Age: 42 Year
  Sex: Female
  Weight: 66.15 kg

DRUGS (2)
  1. FENTANYL TRANSDERMAL SYSTEM [Suspect]
     Active Substance: FENTANYL
     Indication: PAIN IN EXTREMITY
     Dosage: 1 PATCH EVERY 3 DAYS; TRANSDERMAL
     Route: 062
     Dates: start: 20110101, end: 20161003
  2. FENTANYL TRANSDERMAL SYSTEM [Suspect]
     Active Substance: FENTANYL
     Indication: KLIPPEL-TRENAUNAY SYNDROME
     Dosage: 1 PATCH EVERY 3 DAYS; TRANSDERMAL
     Route: 062
     Dates: start: 20110101, end: 20161003

REACTIONS (4)
  - Anxiety [None]
  - Panic reaction [None]
  - Product substitution issue [None]
  - Respiratory arrest [None]

NARRATIVE: CASE EVENT DATE: 20161003
